FAERS Safety Report 5148851-2 (Version None)
Quarter: 2006Q4

REPORT INFORMATION
  Report Type: 
  Country: None (occurrence: None)
  Receive Date: 20061113
  Receipt Date: 20061107
  Transmission Date: 20070319
  Serious: Yes (Death, Hospitalization)
  Sender: FDA-Public Use
  Company Number: IL-BRISTOL-MYERS SQUIBB COMPANY-13569595

PATIENT
  Age: 52 Year
  Sex: Female

DRUGS (8)
  1. CISPLATIN [Suspect]
     Indication: GASTRIC CANCER
     Route: 042
  2. FLUOROURACIL [Suspect]
     Indication: GASTRIC CANCER
     Route: 040
  3. LEUCOVORIN CALCIUM [Suspect]
     Indication: GASTRIC CANCER
  4. ASPIRIN [Concomitant]
  5. ATENOLOL [Concomitant]
  6. NIFEDIPINE [Concomitant]
  7. SIMVASTATIN [Concomitant]
  8. VALSARTAN [Concomitant]

REACTIONS (2)
  - AORTIC THROMBOSIS [None]
  - MALIGNANT NEOPLASM PROGRESSION [None]
